FAERS Safety Report 16297427 (Version 4)
Quarter: 2022Q2

REPORT INFORMATION
  Report Type: Spontaneous
  Country: CA (occurrence: CA)
  Receive Date: 20190510
  Receipt Date: 20220507
  Transmission Date: 20220721
  Serious: Yes (Death, Hospitalization, Other)
  Sender: FDA-Public Use
  Company Number: CA-TEVA-2019-CA-1046226

PATIENT
  Age: 18 Year
  Sex: Female

DRUGS (26)
  1. ACETAMINOPHEN [Suspect]
     Active Substance: ACETAMINOPHEN
     Indication: Product used for unknown indication
     Dosage: 1 DOSAGE FORMS DAILY;
     Route: 048
  2. ACETAMINOPHEN [Suspect]
     Active Substance: ACETAMINOPHEN
     Indication: Completed suicide
     Route: 065
  3. ACETAMINOPHEN [Suspect]
     Active Substance: ACETAMINOPHEN
     Route: 048
  4. ASPIRIN [Suspect]
     Active Substance: ASPIRIN
     Indication: Product used for unknown indication
     Dosage: 1 DOSAGE FORMS DAILY;
     Route: 048
  5. ASPIRIN [Suspect]
     Active Substance: ASPIRIN
     Indication: Completed suicide
     Route: 065
  6. CITALOPRAM [Suspect]
     Active Substance: CITALOPRAM HYDROBROMIDE
     Indication: Product used for unknown indication
     Dosage: 20 MILLIGRAM DAILY;
     Route: 065
  7. DIPHENHYDRAMINE [Suspect]
     Active Substance: DIPHENHYDRAMINE
     Indication: Product used for unknown indication
     Route: 065
  8. PROPOFOL [Suspect]
     Active Substance: PROPOFOL
     Indication: Product used for unknown indication
     Dosage: FORM OF ADMIN:EMULSION
     Route: 065
  9. QUETIAPINE [Suspect]
     Active Substance: QUETIAPINE
     Indication: Product used for unknown indication
     Route: 048
  10. QUETIAPINE [Suspect]
     Active Substance: QUETIAPINE
     Dosage: 25 MILLIGRAM DAILY;
     Route: 048
  11. QUETIAPINE [Suspect]
     Active Substance: QUETIAPINE
     Dosage: 75 MILLIGRAM DAILY;
     Route: 065
  12. QUETIAPINE [Suspect]
     Active Substance: QUETIAPINE
     Dosage: 500 MILLIGRAM DAILY;
     Route: 065
  13. ALCOHOL [Suspect]
     Active Substance: ALCOHOL
     Indication: Product used for unknown indication
     Route: 048
  14. ALCOHOL [Suspect]
     Active Substance: ALCOHOL
     Route: 065
  15. ATOMOXETINE [Concomitant]
     Active Substance: ATOMOXETINE
     Indication: Product used for unknown indication
     Dosage: 60 MILLIGRAM DAILY;
     Route: 065
  16. ISONIAZID [Concomitant]
     Active Substance: ISONIAZID
     Indication: Product used for unknown indication
     Dosage: 300 MILLIGRAM DAILY;
     Route: 065
  17. AMITRIPTYLINE [Concomitant]
     Active Substance: AMITRIPTYLINE
  18. CELECOXIB [Concomitant]
     Active Substance: CELECOXIB
  19. DOMPERIDONE MALEATE [Concomitant]
     Active Substance: DOMPERIDONE MALEATE
  20. ESCITALOPRAM [Concomitant]
     Active Substance: ESCITALOPRAM OXALATE
  21. MORPHINE [Concomitant]
     Active Substance: MORPHINE
  22. PREGABALIN [Concomitant]
     Active Substance: PREGABALIN
  23. ROSUVASTATIN [Concomitant]
     Active Substance: ROSUVASTATIN
  24. TAMSULOSIN [Concomitant]
     Active Substance: TAMSULOSIN
  25. TOVIAZ [Concomitant]
     Active Substance: FESOTERODINE FUMARATE
  26. TRAZODONE [Concomitant]
     Active Substance: TRAZODONE HYDROCHLORIDE

REACTIONS (28)
  - Atrial fibrillation [Fatal]
  - Cardiac arrest [Fatal]
  - Completed suicide [Fatal]
  - Encephalopathy [Fatal]
  - Liver injury [Fatal]
  - Myocarditis [Fatal]
  - Overdose [Fatal]
  - Electrocardiogram ST segment elevation [Fatal]
  - Agitation [Fatal]
  - Cardiac failure [Fatal]
  - Congestive hepatopathy [Fatal]
  - Face oedema [Fatal]
  - Hepatic failure [Fatal]
  - Hepatitis [Fatal]
  - Multiple organ dysfunction syndrome [Fatal]
  - Myalgia [Fatal]
  - Nausea [Fatal]
  - Oedema peripheral [Fatal]
  - Oxygen saturation decreased [Fatal]
  - Pericardial effusion [Fatal]
  - Pleural effusion [Fatal]
  - Seizure [Fatal]
  - Toxicity to various agents [Fatal]
  - Renal tubular necrosis [Fatal]
  - Dyspnoea [Fatal]
  - Dyspnoea exertional [Recovered/Resolved]
  - Fatigue [Recovered/Resolved]
  - Treatment noncompliance [Recovered/Resolved]
